FAERS Safety Report 5190523-2 (Version None)
Quarter: 2006Q4

REPORT INFORMATION
  Report Type: 
  Country: None (occurrence: None)
  Receive Date: 20061222
  Receipt Date: 20061214
  Transmission Date: 20070319
  Serious: Yes (Hospitalization)
  Sender: FDA-Public Use
  Company Number: GB-ROCHE-475057

PATIENT
  Age: 37 Year
  Sex: Male
  Weight: 67.3 kg

DRUGS (7)
  1. CAPECITABINE [Suspect]
     Dosage: GIVEN FOR FOURTEEN DAYS, FOLLOWED BY A WEEK REST (THREE-WEEK-CYCLE).
     Route: 048
     Dates: start: 20041108, end: 20041119
  2. GEMCITABINE [Suspect]
     Dosage: GIVEN ON DAY ONE AND EIGHT OF EACH THREE-WEEK-CYCLE. FORM REPORTED AS INFUSION.
     Route: 042
     Dates: start: 20041108, end: 20041115
  3. OXYCONTIN [Concomitant]
     Route: 048
     Dates: start: 20040901
  4. DOMPERIDONE [Concomitant]
     Route: 048
     Dates: start: 20041110
  5. HALOPERIDOL [Concomitant]
     Route: 048
     Dates: start: 20041014
  6. VOLTAREN [Concomitant]
     Route: 048
     Dates: start: 20041014
  7. CIPROFLOXACIN [Concomitant]
     Dosage: 400 MG ORAL ON 19 AND 20 NOVEMBER 2004, 500 MG INTRAVENOUS FROM 20 TO 23 NOVEMBER 2004. DRUG NAME R+
     Route: 050
     Dates: start: 20041119, end: 20041123

REACTIONS (2)
  - CHOLANGITIS [None]
  - STENT OCCLUSION [None]
